FAERS Safety Report 8282964-1 (Version None)
Quarter: 2012Q2

REPORT INFORMATION
  Report Type: 
  Country: None (occurrence: None)
  Receive Date: 20120413
  Receipt Date: 20120405
  Transmission Date: 20120825
  Serious: Yes (Hospitalization)
  Sender: FDA-Public Use
  Company Number: TR-PFIZER INC-2012087443

PATIENT
  Age: 5 Year
  Sex: Female

DRUGS (2)
  1. CEFTRIAXONE SODIUM [Suspect]
     Indication: PNEUMONIA
     Dosage: UNK
  2. AMPICILLIN SODIUM/SULBACTAM SODIUM [Suspect]
     Indication: PNEUMONIA
     Dosage: UNK

REACTIONS (3)
  - RENAL FAILURE ACUTE [None]
  - HAEMOLYSIS [None]
  - PERITONEAL DIALYSIS [None]
